FAERS Safety Report 23294254 (Version 1)
Quarter: 2023Q4

REPORT INFORMATION
  Report Type: Spontaneous
  Country: ES (occurrence: ES)
  Receive Date: 20231213
  Receipt Date: 20231213
  Transmission Date: 20240110
  Serious: Yes (Other)
  Sender: FDA-Public Use
  Company Number: None

PATIENT
  Age: 47 Year
  Sex: Female
  Weight: 71.9 kg

DRUGS (8)
  1. CARBOPLATIN [Suspect]
     Active Substance: CARBOPLATIN
     Indication: Ovarian cancer
     Route: 042
     Dates: start: 20230403
  2. PACLITAXEL [Concomitant]
     Active Substance: PACLITAXEL
     Indication: Ovarian cancer
     Dosage: 175 MG/M2 EVERY 21 DAYS?ROUTE OF ADMIN. INTRAVENOUS (NOT OTHERWISE SPECIFIED) ( INT )
     Dates: start: 20230403
  3. CODEISAN 28.7 mg TABLETS, 20 tablets [Concomitant]
     Indication: Pain
     Dates: start: 20230605, end: 20230902
  4. GEMCITABINE [Concomitant]
     Active Substance: GEMCITABINE
     Indication: Ovarian cancer
     Dosage: 1000 MG/M2 ON DAYS 1 AND 8 OF THE CYCLE?ROUTE OF ADMIN. SUBCUTANEOUS ( SC )
     Dates: start: 20231017
  5. TARDYFERON 80 mg COATED TABLETS, 30 tablets [Concomitant]
     Indication: Anaemia
     Dosage: 1 TABLET EVERY 8 HOURS?ROUTE OF ADMIN. ORAL
     Dates: start: 20230515
  6. MOTILIUM 10 mg FILM-COATED TABLETS, 30 tablets [Concomitant]
     Indication: Vomiting
     Dosage: ROUTE OF ADMIN. ORAL
     Dates: start: 20230331
  7. INACID 25 mg HARD CAPSULES, 50 capsules [Concomitant]
     Indication: Analgesic therapy
     Dosage: 25 MG EVERY 8 HOURS?ROUTE OF ADMIN. ORAL
     Dates: start: 20230329
  8. FAMOTIDINE ARISTO 20 mg EFG TABLETS, 28 tablets [Concomitant]
     Indication: Prophylaxis against gastrointestinal ulcer
     Dates: start: 20230821

REACTIONS (4)
  - Transfusion-associated dyspnoea [Recovered/Resolved]
  - Rash [Recovered/Resolved]
  - Vomiting [Recovered/Resolved]
  - Nausea [Recovered/Resolved]

NARRATIVE: CASE EVENT DATE: 20231108
